FAERS Safety Report 21067194 (Version 3)
Quarter: 2023Q1

REPORT INFORMATION
  Report Type: Other
  Country: CA (occurrence: None)
  Receive Date: 20220712
  Receipt Date: 20230124
  Transmission Date: 20230418
  Serious: No
  Sender: FDA-Public Use
  Company Number: CA-ROCHE-3135876

PATIENT
  Sex: Male

DRUGS (1)
  1. OCREVUS [Suspect]
     Active Substance: OCRELIZUMAB
     Indication: Relapsing-remitting multiple sclerosis
     Dosage: 300 MG AT DAY 0 AND 14, THEN 600 MG EVERY 6 MONTH
     Route: 042
     Dates: start: 20210831

REACTIONS (5)
  - Concussion [Not Recovered/Not Resolved]
  - COVID-19 [Recovered/Resolved]
  - Vomiting [Recovered/Resolved]
  - Visual acuity reduced [Not Recovered/Not Resolved]
  - Dizziness [Not Recovered/Not Resolved]
